FAERS Safety Report 8505714-X (Version None)
Quarter: 2012Q3

REPORT INFORMATION
  Report Type: 
  Country: None (occurrence: None)
  Receive Date: 20120712
  Receipt Date: 20120706
  Transmission Date: 20120928
  Serious: Yes (Death, Life-Threatening, Other)
  Sender: FDA-Public Use
  Company Number: FR-ASTRAZENECA-2012SE46385

PATIENT
  Age: 13 Year
  Sex: Male

DRUGS (4)
  1. CHLOROQUINE DIPHOSPHATE [Suspect]
     Route: 048
  2. ATENOLOL [Suspect]
     Route: 048
  3. ASPIRIN [Concomitant]
  4. ACETAMINOPHEN [Concomitant]

REACTIONS (4)
  - CYTOLYTIC HEPATITIS [None]
  - CARDIO-RESPIRATORY ARREST [None]
  - TOXICITY TO VARIOUS AGENTS [None]
  - GRAND MAL CONVULSION [None]
